FAERS Safety Report 9664805 (Version 1)
Quarter: 2013Q4

REPORT INFORMATION
  Report Type: Spontaneous
  Country: US (occurrence: US)
  Receive Date: 20131101
  Receipt Date: 20131101
  Transmission Date: 20140711
  Serious: No
  Sender: FDA-Public Use
  Company Number: US-GLAXOSMITHKLINE-A1020055A

PATIENT
  Age: 77 Year
  Sex: Female

DRUGS (5)
  1. RYTHMOL SR [Suspect]
     Indication: ATRIAL FIBRILLATION
     Dosage: 225MG TWICE PER DAY
     Route: 048
     Dates: start: 201211
  2. UNKNOWN SUPPLEMENTS [Suspect]
     Dosage: 1TAB PER DAY
     Route: 048
     Dates: start: 201302, end: 201303
  3. DIGOXIN [Concomitant]
  4. WARFARIN [Concomitant]
  5. LEVOTHYROXINE [Concomitant]

REACTIONS (2)
  - Urticaria [Recovering/Resolving]
  - Pruritus [Unknown]
